FAERS Safety Report 8077975-5 (Version None)
Quarter: 2012Q1

REPORT INFORMATION
  Report Type: 
  Country: None (occurrence: None)
  Receive Date: 20120127
  Receipt Date: 20110105
  Transmission Date: 20120608
  Serious: Yes (Hospitalization)
  Sender: FDA-Public Use
  Company Number: US-ABBOTT-11P-163-0695571-00

PATIENT
  Age: 68 Year
  Sex: Female

DRUGS (10)
  1. SYNTHROID [Concomitant]
     Indication: HYPOTHYROIDISM
  2. NORVASC [Concomitant]
     Indication: HYPERTENSION
  3. FORTEO [Concomitant]
     Indication: OSTEOPOROSIS
     Dosage: UNKNOWN
  4. ATACAND [Concomitant]
     Indication: HYPERTENSION
  5. PROZAC [Concomitant]
     Indication: PRODUCT USED FOR UNKNOWN INDICATION
  6. HUMIRA [Suspect]
     Indication: RHEUMATOID ARTHRITIS
     Dates: start: 20080101, end: 20101120
  7. VITAMIN E [Concomitant]
     Indication: PRODUCT USED FOR UNKNOWN INDICATION
     Dosage: DAILY
  8. HUMIRA [Suspect]
     Dates: start: 20100105
  9. CELEBREX [Concomitant]
     Indication: INFLAMMATION
  10. TRAMADOL HCL [Concomitant]
     Indication: PAIN
     Dosage: AS NEEDED

REACTIONS (4)
  - DRUG DOSE OMISSION [None]
  - GINGIVAL SWELLING [None]
  - GASTROINTESTINAL PAIN [None]
  - GLOSSODYNIA [None]
